FAERS Safety Report 8942600 (Version 3)
Quarter: 2013Q1

REPORT INFORMATION
  Report Type: Spontaneous
  Country: US (occurrence: US)
  Receive Date: 20121204
  Receipt Date: 20130104
  Transmission Date: 20140127
  Serious: Yes (Hospitalization)
  Sender: FDA-Public Use
  Company Number: US-TEVA-372865USA

PATIENT
  Age: 38 None
  Sex: Female

DRUGS (1)
  1. COPAXONE [Suspect]
     Indication: MULTIPLE SCLEROSIS
     Dates: start: 20100605

REACTIONS (5)
  - Gallbladder operation [Unknown]
  - Cholecystectomy [Unknown]
  - Pain [Recovering/Resolving]
  - Abdominal pain [Unknown]
  - Gastrooesophageal reflux disease [Unknown]
